FAERS Safety Report 6012595-5 (Version None)
Quarter: 2008Q4

REPORT INFORMATION
  Report Type: 
  Country: None (occurrence: None)
  Receive Date: 20081217
  Receipt Date: 20081210
  Transmission Date: 20090506
  Serious: Yes (Other)
  Sender: FDA-Public Use
  Company Number: 2008SP025286

PATIENT
  Age: 79 Year
  Sex: Male

DRUGS (3)
  1. DESLORATADINE [Suspect]
     Indication: DRUG USE FOR UNKNOWN INDICATION
     Dosage: ;UNK
  2. XYZAL [Concomitant]
  3. ATARAX [Concomitant]

REACTIONS (1)
  - ARRHYTHMIA [None]
